FAERS Safety Report 16357210 (Version 2)
Quarter: 2019Q2

REPORT INFORMATION
  Report Type: Report from Study
  Country: IT (occurrence: IT)
  Receive Date: 20190527
  Receipt Date: 20190607
  Transmission Date: 20190711
  Serious: Yes (Hospitalization)
  Sender: FDA-Public Use
  Company Number: IT-ACCORD-129430

PATIENT
  Age: 87 Year
  Sex: Female

DRUGS (9)
  1. LASIX [Concomitant]
     Active Substance: FUROSEMIDE
     Dosage: STRENGTH : 25 MG
     Route: 048
  2. CARDICOR [Concomitant]
     Active Substance: BISOPROLOL
     Indication: HYPERTENSION
     Dosage: STRENGTH : 1.25 MG
     Route: 048
  3. ALLOPURINOL. [Suspect]
     Active Substance: ALLOPURINOL
     Indication: PRODUCT USED FOR UNKNOWN INDICATION
     Route: 048
     Dates: start: 20181008, end: 20181104
  4. LEUKERAN [Interacting]
     Active Substance: CHLORAMBUCIL
     Indication: CHRONIC LYMPHOCYTIC LEUKAEMIA
     Dosage: STRENGTH : 2 MG
     Route: 048
     Dates: start: 20181008, end: 20181104
  5. BINOCRIT [Concomitant]
     Active Substance: ERYTHROPOIETIN
     Dosage: STRENGTH : 1,000 IU / 0.5 ML
     Route: 058
  6. LERCAPREL [Concomitant]
     Active Substance: ENALAPRIL MALEATE\LERCANIDIPINE HYDROCHLORIDE
     Dosage: STRENGTH : 20 MG / 10 MG
     Route: 048
  7. COUMADIN [Concomitant]
     Active Substance: WARFARIN SODIUM
     Dosage: STRENGTH : 5 MG
     Route: 048
  8. MODURETIC 5-50 [Concomitant]
     Active Substance: AMILORIDE HYDROCHLORIDE\HYDROCHLOROTHIAZIDE
     Dosage: STRENGTH : 5 MG + 50 MG
     Route: 048
  9. LANOXIN [Concomitant]
     Active Substance: DIGOXIN
     Dosage: STRENGTH : 0.0625 MG
     Route: 048

REACTIONS (5)
  - Dermatitis bullous [Recovered/Resolved]
  - Hyperthermia [Recovered/Resolved]
  - Drug interaction [Unknown]
  - Anaemia [Recovered/Resolved]
  - Rash [Recovered/Resolved]

NARRATIVE: CASE EVENT DATE: 20181103
